APPROVED DRUG PRODUCT: CARDRASE
Active Ingredient: ETHOXZOLAMIDE
Strength: 125MG
Dosage Form/Route: TABLET;ORAL
Application: N011047 | Product #001
Applicant: PHARMACIA AND UPJOHN CO
Approved: Approved Prior to Jan 1, 1982 | RLD: No | RS: No | Type: DISCN